FAERS Safety Report 20875624 (Version 3)
Quarter: 2022Q4

REPORT INFORMATION
  Report Type: Spontaneous
  Country: US (occurrence: US)
  Receive Date: 20220526
  Receipt Date: 20221215
  Transmission Date: 20230112
  Serious: Yes (Other)
  Sender: FDA-Public Use
  Company Number: US-EXELIXIS-CABO-22050294

PATIENT
  Age: 66 Year
  Sex: Male

DRUGS (62)
  1. OPDIVO [Suspect]
     Active Substance: NIVOLUMAB
     Indication: Prostate cancer
  2. CABOMETYX [Suspect]
     Active Substance: CABOZANTINIB S-MALATE
     Indication: Prostate cancer
     Dosage: 40 MG, QD
     Dates: start: 20220228, end: 20220515
  3. VITAMINS [Concomitant]
     Active Substance: VITAMINS
     Dosage: UNK
  4. LISINOPRIL [Concomitant]
     Active Substance: LISINOPRIL
     Dosage: UNK
  5. LISINOPRIL [Concomitant]
     Active Substance: LISINOPRIL
  6. LISINOPRIL [Concomitant]
     Active Substance: LISINOPRIL
  7. LISINOPRIL [Concomitant]
     Active Substance: LISINOPRIL
     Dosage: UNK
  8. LORATADINE [Concomitant]
     Active Substance: LORATADINE
     Dosage: UNK
  9. LORATADINE [Concomitant]
     Active Substance: LORATADINE
  10. LORATADINE [Concomitant]
     Active Substance: LORATADINE
  11. LORATADINE [Concomitant]
     Active Substance: LORATADINE
     Dosage: UNK
  12. MELATONIN [Concomitant]
     Active Substance: MELATONIN
     Dosage: UNK
  13. MELATONIN [Concomitant]
     Active Substance: MELATONIN
  14. MELATONIN [Concomitant]
     Active Substance: MELATONIN
  15. MELATONIN [Concomitant]
     Active Substance: MELATONIN
     Dosage: UNK
  16. XGEVA [Concomitant]
     Active Substance: DENOSUMAB
     Dosage: UNK
  17. XGEVA [Concomitant]
     Active Substance: DENOSUMAB
  18. XGEVA [Concomitant]
     Active Substance: DENOSUMAB
  19. XGEVA [Concomitant]
     Active Substance: DENOSUMAB
     Dosage: UNK
  20. LORAZEPAM [Concomitant]
     Active Substance: LORAZEPAM
     Dosage: UNK
  21. LORAZEPAM [Concomitant]
     Active Substance: LORAZEPAM
  22. LORAZEPAM [Concomitant]
     Active Substance: LORAZEPAM
  23. LORAZEPAM [Concomitant]
     Active Substance: LORAZEPAM
     Dosage: UNK
  24. XARELTO [Concomitant]
     Active Substance: RIVAROXABAN
     Dosage: UNK
  25. XARELTO [Concomitant]
     Active Substance: RIVAROXABAN
  26. XARELTO [Concomitant]
     Active Substance: RIVAROXABAN
  27. XARELTO [Concomitant]
     Active Substance: RIVAROXABAN
     Dosage: UNK
  28. AMLODIPINE [Concomitant]
     Active Substance: AMLODIPINE BESYLATE
     Dosage: UNK
  29. AMLODIPINE [Concomitant]
     Active Substance: AMLODIPINE BESYLATE
  30. AMLODIPINE [Concomitant]
     Active Substance: AMLODIPINE BESYLATE
  31. AMLODIPINE [Concomitant]
     Active Substance: AMLODIPINE BESYLATE
     Dosage: UNK
  32. LUPRON [Concomitant]
     Active Substance: LEUPROLIDE ACETATE
  33. LUPRON [Concomitant]
     Active Substance: LEUPROLIDE ACETATE
  34. LUPRON [Concomitant]
     Active Substance: LEUPROLIDE ACETATE
  35. LUPRON [Concomitant]
     Active Substance: LEUPROLIDE ACETATE
  36. OXYCODONE [Concomitant]
     Active Substance: OXYCODONE
     Dosage: UNK
  37. OXYCODONE [Concomitant]
     Active Substance: OXYCODONE
     Dosage: UNK
  38. OXYCODONE [Concomitant]
     Active Substance: OXYCODONE
     Dosage: UNK
  39. OXYCODONE [Concomitant]
     Active Substance: OXYCODONE
     Dosage: UNK
  40. LEVOTHYROXINE [Concomitant]
     Active Substance: LEVOTHYROXINE
     Dosage: UNK
  41. LEVOTHYROXINE [Concomitant]
     Active Substance: LEVOTHYROXINE
     Dosage: UNK
  42. LEVOTHYROXINE [Concomitant]
     Active Substance: LEVOTHYROXINE
     Dosage: UNK
  43. TESTOSTERONE CYPIONATE [Concomitant]
     Active Substance: TESTOSTERONE CYPIONATE
     Dosage: UNK
  44. TESTOSTERONE CYPIONATE [Concomitant]
     Active Substance: TESTOSTERONE CYPIONATE
     Dosage: UNK
  45. CALCIUM\VITAMIN D [Concomitant]
     Active Substance: CALCIUM\VITAMIN D
  46. CALCIUM\VITAMIN D [Concomitant]
     Active Substance: CALCIUM\VITAMIN D
     Dosage: UNK
  47. VITAMIN B12 [Concomitant]
     Active Substance: CYANOCOBALAMIN
  48. VITAMIN B12 [Concomitant]
     Active Substance: CYANOCOBALAMIN
  49. VITAMIN B12 [Concomitant]
     Active Substance: CYANOCOBALAMIN
     Dosage: UNK
  50. FLONASE [Concomitant]
     Active Substance: FLUTICASONE PROPIONATE
  51. FLONASE [Concomitant]
     Active Substance: FLUTICASONE PROPIONATE
  52. FLONASE [Concomitant]
     Active Substance: FLUTICASONE PROPIONATE
     Dosage: UNK
  53. VITAMINS [Concomitant]
     Active Substance: VITAMINS
  54. VITAMINS [Concomitant]
     Active Substance: VITAMINS
  55. VITAMINS [Concomitant]
     Active Substance: VITAMINS
     Dosage: UNK
  56. TYLENOL [Concomitant]
     Active Substance: ACETAMINOPHEN
  57. TYLENOL [Concomitant]
     Active Substance: ACETAMINOPHEN
  58. TYLENOL [Concomitant]
     Active Substance: ACETAMINOPHEN
     Dosage: UNK
  59. TRIAMCINOLONE ACETONIDE [Concomitant]
     Active Substance: TRIAMCINOLONE ACETONIDE
     Dosage: UNK
  60. TRIAMCINOLONE ACETONIDE [Concomitant]
     Active Substance: TRIAMCINOLONE ACETONIDE
     Dosage: UNK
  61. CALCIUM\VITAMIN D [Concomitant]
     Active Substance: CALCIUM\VITAMIN D
  62. TRIAMCINOLONE ACETONIDE [Concomitant]
     Active Substance: TRIAMCINOLONE ACETONIDE
     Dosage: UNK

REACTIONS (16)
  - Thyroid hormones increased [Not Recovered/Not Resolved]
  - Sensitive skin [Recovering/Resolving]
  - Prostatic specific antigen increased [Not Recovered/Not Resolved]
  - Gastrointestinal motility disorder [Unknown]
  - Oral pain [Not Recovered/Not Resolved]
  - Rash pruritic [Recovering/Resolving]
  - Taste disorder [Not Recovered/Not Resolved]
  - Fatigue [Not Recovered/Not Resolved]
  - Nausea [Unknown]
  - Dehydration [Unknown]
  - Metastases to bone [Recovering/Resolving]
  - Blood glucose increased [Recovered/Resolved]
  - Weight decreased [Not Recovered/Not Resolved]
  - Decreased appetite [Unknown]
  - Fatigue [Recovering/Resolving]
  - Intentional product use issue [Unknown]
